FAERS Safety Report 16373778 (Version 1)
Quarter: 2019Q2

REPORT INFORMATION
  Report Type: Spontaneous
  Country: US (occurrence: US)
  Receive Date: 20190530
  Receipt Date: 20190530
  Transmission Date: 20190711
  Serious: Yes (Other)
  Sender: FDA-Public Use
  Company Number: US-TEVA-2019-US-1055757

PATIENT
  Age: 71 Year
  Sex: Female

DRUGS (4)
  1. BUDESONIDE. [Suspect]
     Active Substance: BUDESONIDE
     Indication: ASTHMA
     Dosage: 0.25 MG/DOSE
     Route: 055
  2. MONTELUKAST [Concomitant]
     Active Substance: MONTELUKAST SODIUM
     Indication: ASTHMA
     Dosage: 10 MILLIGRAM DAILY;
     Route: 048
  3. FLUCONAZOLE. [Suspect]
     Active Substance: FLUCONAZOLE
     Indication: CRYPTOCOCCOSIS
     Dosage: 400 MILLIGRAM DAILY;
     Route: 048
  4. FLUCONAZOLE. [Suspect]
     Active Substance: FLUCONAZOLE
     Indication: RESPIRATORY TRACT INFECTION FUNGAL

REACTIONS (3)
  - Nausea [Unknown]
  - Cryptococcosis [Recovered/Resolved]
  - Respiratory tract infection fungal [Recovered/Resolved]
